FAERS Safety Report 16030389 (Version 1)
Quarter: 2019Q1

REPORT INFORMATION
  Report Type: Spontaneous
  Country: CA (occurrence: CA)
  Receive Date: 20190304
  Receipt Date: 20190304
  Transmission Date: 20190418
  Serious: Yes (Other)
  Sender: FDA-Public Use
  Company Number: CA-PFIZER INC-2019089337

PATIENT
  Age: 72 Year
  Sex: Female

DRUGS (3)
  1. ESTRING [Suspect]
     Active Substance: ESTRADIOL
  2. ASPIRINE [Concomitant]
     Active Substance: ASPIRIN
  3. ATACAND [Concomitant]
     Active Substance: CANDESARTAN CILEXETIL

REACTIONS (4)
  - Cerebrovascular accident [Unknown]
  - Appendicitis [Unknown]
  - Vaginal infection [Unknown]
  - Arteritis [Unknown]

NARRATIVE: CASE EVENT DATE: 2016
